FAERS Safety Report 8457969-8 (Version None)
Quarter: 2012Q2

REPORT INFORMATION
  Report Type: 
  Country: None (occurrence: None)
  Receive Date: 20120622
  Receipt Date: 20120618
  Transmission Date: 20120825
  Serious: Yes (Life-Threatening, Other)
  Sender: FDA-Public Use
  Company Number: US-JNJFOC-20120601099

PATIENT
  Sex: Male

DRUGS (2)
  1. DOXORUBICIN HYDROCHLORIDE [Suspect]
     Indication: KAPOSI'S SARCOMA
     Dosage: ONCE EVERY 4-8 WEEKS (A TOTAL OF 15 DOSES)
     Route: 042
     Dates: start: 20020404, end: 20050615
  2. ATRIPLA [Concomitant]
     Dosage: EFAVIRENZ, EMTRICITABINE AND TENOFOVIR
     Route: 065

REACTIONS (1)
  - SQUAMOUS CELL CARCINOMA [None]
